FAERS Safety Report 6863299-8 (Version None)
Quarter: 2010Q3

REPORT INFORMATION
  Report Type: 
  Country: None (occurrence: None)
  Receive Date: 20100721
  Receipt Date: 20100714
  Transmission Date: 20110219
  Serious: Yes (Death)
  Sender: FDA-Public Use
  Company Number: US-GILEAD-2010-0030446

PATIENT
  Sex: Female

DRUGS (11)
  1. LETAIRIS [Suspect]
     Indication: PULMONARY ARTERIAL HYPERTENSION
     Route: 048
     Dates: start: 20081121
  2. DIGOXIN [Concomitant]
  3. LISINOPRIL [Concomitant]
  4. ASPIRIN [Concomitant]
  5. ROPINIROLE [Concomitant]
  6. CARBIDOPA AND LEVODOPA [Concomitant]
  7. ARICEPT [Concomitant]
  8. TYLENOL [Concomitant]
  9. WOMENS MULTIVITAMIN AND MINERALS [Concomitant]
  10. FOSAMAX [Concomitant]
  11. SEROQUEL [Concomitant]

REACTIONS (1)
  - DEATH [None]
